FAERS Safety Report 19796853 (Version 2)
Quarter: 2021Q4

REPORT INFORMATION
  Report Type: Report from Study
  Country: US (occurrence: US)
  Receive Date: 20210907
  Receipt Date: 20211014
  Transmission Date: 20220304
  Serious: Yes (Other)
  Sender: FDA-Public Use
  Company Number: NVSC2021US199438

PATIENT
  Sex: Female

DRUGS (2)
  1. KISQALI [Suspect]
     Active Substance: RIBOCICLIB
     Indication: Product used for unknown indication
     Dosage: UNK
     Route: 048
  2. KISQALI [Suspect]
     Active Substance: RIBOCICLIB
     Dosage: UNK UNK, QOD
     Route: 048

REACTIONS (7)
  - Neuropathy peripheral [Unknown]
  - Skin exfoliation [Unknown]
  - Pain in extremity [Unknown]
  - Peripheral swelling [Unknown]
  - Rash [Unknown]
  - Cough [Unknown]
  - Inappropriate schedule of product administration [Unknown]
